FAERS Safety Report 23947108 (Version 1)
Quarter: 2024Q2

REPORT INFORMATION
  Report Type: Report from Study
  Country: GB (occurrence: GB)
  Receive Date: 20240606
  Receipt Date: 20240606
  Transmission Date: 20240715
  Serious: Yes (Other)
  Sender: FDA-Public Use
  Company Number: GB-BIOVITRUM-2024-GB-008112

PATIENT
  Age: 22 Year
  Sex: Female

DRUGS (1)
  1. KINERET [Suspect]
     Active Substance: ANAKINRA
     Indication: Still^s disease
     Dosage: ONCE DAILY (OD)
     Route: 058
     Dates: start: 20240523

REACTIONS (10)
  - Injection site erythema [Unknown]
  - Injection site swelling [Unknown]
  - Injection site warmth [Unknown]
  - Diarrhoea [Unknown]
  - Pyrexia [Unknown]
  - Illness [Unknown]
  - Dizziness [Unknown]
  - Hyperhidrosis [Unknown]
  - Deafness [Recovered/Resolved]
  - Blindness transient [Recovered/Resolved]
